FAERS Safety Report 20214247 (Version 2)
Quarter: 2022Q1

REPORT INFORMATION
  Report Type: Spontaneous
  Country: US (occurrence: US)
  Receive Date: 20211221
  Receipt Date: 20220225
  Transmission Date: 20220423
  Serious: No
  Sender: FDA-Public Use
  Company Number: US-002147023-NVSC2021US291191

PATIENT
  Sex: Male

DRUGS (1)
  1. INTERFERON BETA-1B [Suspect]
     Active Substance: INTERFERON BETA-1B
     Indication: Multiple sclerosis
     Route: 065

REACTIONS (2)
  - Injection site erythema [None]
  - Pain [None]
